FAERS Safety Report 8243084-5 (Version None)
Quarter: 2012Q1

REPORT INFORMATION
  Report Type: 
  Country: None (occurrence: None)
  Receive Date: 20120329
  Receipt Date: 20120320
  Transmission Date: 20120608
  Serious: Yes (Disabling)
  Sender: FDA-Public Use
  Company Number: GB-BAYER-2012-028547

PATIENT
  Age: 67 Year
  Sex: Male

DRUGS (14)
  1. DIGOXIN [Concomitant]
     Dosage: UNK
     Dates: start: 20111209
  2. LANSOPRAZOLE [Concomitant]
     Dosage: UNK
     Dates: start: 20120309
  3. NAPROXEN SODIUM [Suspect]
     Indication: PRODUCT USED FOR UNKNOWN INDICATION
     Dosage: UNK
     Dates: start: 20120309
  4. ALBUTEROL SULFATE AUTOHALER [Concomitant]
     Dosage: UNK
     Dates: start: 20120117, end: 20120214
  5. SIMVASTATIN [Concomitant]
     Dosage: UNK
     Dates: start: 20111209
  6. CLONAZEPAM [Concomitant]
     Dosage: UNK
     Dates: start: 20111219
  7. BUDESONIDE [Concomitant]
  8. SPIRONOLACTONE [Concomitant]
     Dosage: UNK
     Dates: start: 20111209
  9. DOTHIEPIN HYDROCHLORIDE [Concomitant]
     Dosage: UNK
     Dates: start: 20120126, end: 20120223
  10. FUROSEMIDE [Concomitant]
     Dosage: UNK
     Dates: start: 20111209, end: 20120214
  11. CARVEDILOL [Concomitant]
     Dosage: UNK
     Dates: start: 20111209, end: 20120214
  12. RAMIPRIL [Concomitant]
     Dosage: UNK
     Dates: start: 20111209
  13. COLCHICINE [Concomitant]
     Dosage: UNK
     Dates: start: 20120119, end: 20120216
  14. TIOTROPIUM BROMIDE [Concomitant]
     Dosage: UNK
     Dates: start: 20111209, end: 20120216

REACTIONS (1)
  - ASTHMA [None]
